FAERS Safety Report 16291317 (Version 1)
Quarter: 2019Q2

REPORT INFORMATION
  Report Type: Spontaneous
  Country: IN (occurrence: IN)
  Receive Date: 20190509
  Receipt Date: 20190509
  Transmission Date: 20190711
  Serious: Yes (Life-Threatening)
  Sender: FDA-Public Use
  Company Number: IN-MYLANLABS-2019M1044591

PATIENT
  Age: 4 Year
  Sex: Male

DRUGS (23)
  1. NITROGLYCERIN. [Suspect]
     Active Substance: NITROGLYCERIN
     Indication: PULMONARY HYPERTENSIVE CRISIS
     Route: 055
  2. HEPARIN [Concomitant]
     Active Substance: HEPARIN SODIUM
     Indication: ANTICOAGULANT THERAPY
     Route: 065
  3. RINGER^S SOLUTION                  /06440701/ [Concomitant]
     Indication: PRODUCT USED FOR UNKNOWN INDICATION
     Route: 065
  4. SILDENAFIL. [Concomitant]
     Active Substance: SILDENAFIL
     Indication: PULMONARY HYPERTENSION
     Dosage: 6.25 MG 8 HOURLY
     Route: 048
  5. SEVOFLURANE. [Concomitant]
     Active Substance: SEVOFLURANE
     Indication: ANAESTHESIA
     Dosage: 5%-7% IN 100% OXYGEN
     Route: 055
  6. PHENOXYBENZAMINE [Concomitant]
     Active Substance: PHENOXYBENZAMINE
     Indication: METABOLIC ACIDOSIS
  7. DOBUTAMINE [Concomitant]
     Active Substance: DOBUTAMINE\DOBUTAMINE HYDROCHLORIDE
     Indication: CARDIOPULMONARY BYPASS
     Dosage: 2-5 MCG/KG/MIN
     Route: 065
  8. NOREPINEPHRINE. [Suspect]
     Active Substance: NOREPINEPHRINE
     Indication: PULMONARY HYPERTENSIVE CRISIS
     Route: 065
  9. MILRINONE [Suspect]
     Active Substance: MILRINONE
     Indication: PULMONARY HYPERTENSIVE CRISIS
     Route: 055
  10. THIOPENTONE SODIUM [Concomitant]
     Active Substance: THIOPENTAL SODIUM
     Indication: ANAESTHESIA
     Route: 065
  11. PHENOXYBENZAMINE [Concomitant]
     Active Substance: PHENOXYBENZAMINE
     Indication: PROPHYLAXIS
     Route: 065
  12. NITROGLYCERIN. [Concomitant]
     Active Substance: NITROGLYCERIN
     Indication: CARDIOPULMONARY BYPASS
     Dosage: 1 MCG/KG/MIN
     Route: 050
  13. VASOPRESSIN. [Suspect]
     Active Substance: VASOPRESSIN
     Indication: PULMONARY HYPERTENSIVE CRISIS
     Dosage: 0.2 UNITS/MIN
     Route: 065
  14. PANCURONIUM BROMIDE. [Concomitant]
     Active Substance: PANCURONIUM BROMIDE
     Indication: ENDOTRACHEAL INTUBATION
     Route: 065
  15. MIDAZOLAM [Concomitant]
     Active Substance: MIDAZOLAM HYDROCHLORIDE
     Indication: ANAESTHESIA
     Route: 065
  16. PHENOXYBENZAMINE [Concomitant]
     Active Substance: PHENOXYBENZAMINE
     Indication: PULMONARY HYPERTENSION
  17. FENTANYL. [Concomitant]
     Active Substance: FENTANYL
     Indication: ANAESTHESIA
     Route: 065
  18. ALBUMIN [Concomitant]
     Active Substance: ALBUMIN HUMAN
     Indication: PRODUCT USED FOR UNKNOWN INDICATION
     Route: 065
  19. EPINEPHRINE. [Suspect]
     Active Substance: EPINEPHRINE
     Indication: PULMONARY HYPERTENSIVE CRISIS
     Dosage: 0.1 MICROG/KG/MIN
     Route: 042
  20. SILDENAFIL. [Suspect]
     Active Substance: SILDENAFIL
     Indication: PULMONARY HYPERTENSIVE CRISIS
     Route: 042
  21. MILRINONE [Concomitant]
     Active Substance: MILRINONE
     Indication: CARDIOPULMONARY BYPASS
     Dosage: 0.5 MCG/KG/MIN
     Route: 065
  22. PROTAMINE [Concomitant]
     Active Substance: PROTAMINE
     Indication: PROPHYLAXIS
     Route: 065
  23. CALCIUM GLUCONATE. [Concomitant]
     Active Substance: CALCIUM GLUCONATE
     Indication: CARDIOPULMONARY BYPASS
     Route: 050

REACTIONS (1)
  - Drug ineffective [Unknown]
